FAERS Safety Report 11486257 (Version 2)
Quarter: 2015Q4

REPORT INFORMATION
  Report Type: Spontaneous
  Country: US (occurrence: US)
  Receive Date: 20150910
  Receipt Date: 20151026
  Transmission Date: 20160304
  Serious: Yes (Other)
  Sender: FDA-Public Use
  Company Number: US-UCBSA-2015028420

PATIENT
  Sex: Male

DRUGS (2)
  1. VIMPAT [Suspect]
     Active Substance: LACOSAMIDE
     Indication: SEIZURE
     Dosage: 400 MG DAILY (200 MG 2/DAY)
     Dates: start: 20121008
  2. KEPPRA [Suspect]
     Active Substance: LEVETIRACETAM
     Indication: SEIZURE
     Dosage: 3000 MG DAILY (1000 MG 3/DAY)
     Dates: start: 20100310

REACTIONS (3)
  - Brain operation [Not Recovered/Not Resolved]
  - Treatment noncompliance [Unknown]
  - Seizure [Unknown]
